FAERS Safety Report 6370833-3 (Version None)
Quarter: 2009Q3

REPORT INFORMATION
  Report Type: 
  Country: None (occurrence: None)
  Receive Date: 20090923
  Receipt Date: 20080131
  Transmission Date: 20100115
  Serious: Yes (Other)
  Sender: FDA-Public Use
  Company Number: US-ASTRAZENECA-2006UW23871

PATIENT
  Age: 15819 Day
  Sex: Female
  Weight: 72.1 kg

DRUGS (4)
  1. SEROQUEL [Suspect]
     Indication: PSYCHOTIC DISORDER
     Dosage: 50-100 MG
     Route: 048
     Dates: start: 20040112
  2. SEROQUEL [Suspect]
     Indication: SLEEP DISORDER
     Dosage: 50-100 MG
     Route: 048
     Dates: start: 20040112
  3. SEROQUEL [Suspect]
     Dosage: 100 MG
     Route: 048
     Dates: start: 20040910
  4. SEROQUEL [Suspect]
     Dosage: 100 MG
     Route: 048
     Dates: start: 20040910

REACTIONS (1)
  - PANCREATITIS [None]
